FAERS Safety Report 6103750-4 (Version None)
Quarter: 2009Q1

REPORT INFORMATION
  Report Type: 
  Country: None (occurrence: None)
  Receive Date: 20090227
  Receipt Date: 20080402
  Transmission Date: 20090719
  Serious: Yes (Hospitalization)
  Sender: FDA-Public Use
  Company Number: 458437

PATIENT
  Age: 27 Year
  Sex: Male
  Weight: 72.6 kg

DRUGS (1)
  1. ACCUTANE [Suspect]
     Indication: ACNE CYSTIC
     Dosage: 40 MG 2 PER DAY ORAL
     Route: 048
     Dates: start: 19970128, end: 19980301

REACTIONS (11)
  - ANXIETY [None]
  - ARTHRALGIA [None]
  - ASTHENIA [None]
  - COLITIS [None]
  - COLITIS ULCERATIVE [None]
  - CROHN'S DISEASE [None]
  - DEPRESSION [None]
  - HEADACHE [None]
  - INFLAMMATORY BOWEL DISEASE [None]
  - PANCREATITIS [None]
  - VISUAL IMPAIRMENT [None]
